FAERS Safety Report 7016237-1 (Version None)
Quarter: 2010Q3

REPORT INFORMATION
  Report Type: 
  Country: None (occurrence: None)
  Receive Date: 20100927
  Receipt Date: 20090818
  Transmission Date: 20110219
  Serious: No
  Sender: FDA-Public Use
  Company Number: US-ASTRAZENECA-2008UW15397

PATIENT
  Age: 70 Year
  Sex: Female
  Weight: 114.3 kg

DRUGS (17)
  1. ARIMIDEX [Suspect]
     Indication: BREAST CANCER
     Route: 048
     Dates: start: 20070101
  2. LASIX [Concomitant]
  3. TORSEMIDE [Concomitant]
  4. COZAAR [Concomitant]
  5. ASPIRIN [Concomitant]
  6. METOPROLOL TARTRATE [Concomitant]
  7. METOLAZONE [Concomitant]
  8. PEPCID [Concomitant]
  9. CYMBALTA [Concomitant]
  10. LIPITOR [Concomitant]
     Dates: start: 19980101
  11. VITAMIN TAB [Concomitant]
  12. PROZAC [Concomitant]
  13. NABUMETONE [Concomitant]
  14. SYNTHROID [Concomitant]
  15. PROVIGIL [Concomitant]
  16. INSULIN [Concomitant]
  17. METFORMIN [Concomitant]

REACTIONS (4)
  - ASTHENIA [None]
  - BACK PAIN [None]
  - DRUG DOSE OMISSION [None]
  - URINARY INCONTINENCE [None]
